FAERS Safety Report 20596232 (Version 5)
Quarter: 2022Q3

REPORT INFORMATION
  Report Type: Spontaneous
  Country: FR (occurrence: FR)
  Receive Date: 20220315
  Receipt Date: 20220720
  Transmission Date: 20221027
  Serious: Yes (Life-Threatening, Hospitalization, Other)
  Sender: FDA-Public Use
  Company Number: FR-BIOGARAN-B22000147

PATIENT
  Age: 20 Year
  Sex: Male
  Weight: 85 kg

DRUGS (5)
  1. ACETAMINOPHEN [Interacting]
     Active Substance: ACETAMINOPHEN
     Indication: Product used for unknown indication
     Dosage: UNK
     Route: 065
  2. BISOPROLOL [Interacting]
     Active Substance: BISOPROLOL
     Indication: Product used for unknown indication
     Dosage: UNK
     Route: 048
  3. APIXABAN [Interacting]
     Active Substance: APIXABAN
     Indication: Pulmonary embolism
     Dosage: UNK,30 X [5 MG X 2] (300 MG)
     Route: 048
  4. APIXABAN [Interacting]
     Active Substance: APIXABAN
     Indication: Anticoagulant therapy
     Dosage: 300 MILLIGRAM, TOTAL
     Route: 048
  5. ZOPICLONE [Interacting]
     Active Substance: ZOPICLONE
     Indication: Product used for unknown indication
     Dosage: UNK
     Route: 048

REACTIONS (7)
  - Suicide attempt [Unknown]
  - Somnolence [Unknown]
  - Intentional product misuse [Unknown]
  - Intentional overdose [Unknown]
  - Poisoning deliberate [Unknown]
  - Drug interaction [Unknown]
  - Toxicity to various agents [Unknown]
